FAERS Safety Report 5194857-7 (Version None)
Quarter: 2006Q4

REPORT INFORMATION
  Report Type: 
  Country: None (occurrence: None)
  Receive Date: 20061227
  Receipt Date: 20061214
  Transmission Date: 20070319
  Serious: Yes (Other)
  Sender: FDA-Public Use
  Company Number: SPV1-2006-02179

PATIENT
  Age: 38 Year
  Sex: Female
  Weight: 56.7 kg

DRUGS (1)
  1. DAYTRANA [Suspect]
     Indication: ATTENTION DEFICIT/HYPERACTIVITY DISORDER
     Dosage: 15MG, TRANSDERMAL
     Route: 062
     Dates: start: 20061001, end: 20061031

REACTIONS (8)
  - DIARRHOEA [None]
  - FEELING ABNORMAL [None]
  - HAEMORRHAGE [None]
  - PYREXIA [None]
  - RASH ERYTHEMATOUS [None]
  - RASH PRURITIC [None]
  - SCRATCH [None]
  - ULCER [None]
